FAERS Safety Report 6474327-6 (Version None)
Quarter: 2009Q4

REPORT INFORMATION
  Report Type: 
  Country: None (occurrence: None)
  Receive Date: 20091204
  Receipt Date: 20091203
  Transmission Date: 20100525
  Serious: Yes (Hospitalization)
  Sender: FDA-Public Use
  Company Number: GXKR2009DE09144

PATIENT
  Age: 79 Year
  Sex: Female

DRUGS (12)
  1. BISOHEXAL (NGX) [Suspect]
     Indication: HYPERTENSION
     Dosage: 2.5 MG, BID
     Route: 048
     Dates: start: 20070101, end: 20090721
  2. CALCIMAGON-D3 [Suspect]
     Indication: HYPOCALCAEMIA
     Dosage: 1 DF, BID
     Route: 048
     Dates: start: 20090401, end: 20090721
  3. DIGITOXIN TAB [Suspect]
     Indication: ATRIAL FIBRILLATION
     Dosage: 0.07 MG, QD
     Route: 048
     Dates: start: 20070101, end: 20090721
  4. AGGRENOX [Concomitant]
  5. FORMOTEROL FUMARATE [Concomitant]
  6. INSULIN ACTRAPID HUMAN [Concomitant]
  7. KEPRA [Concomitant]
  8. LEVOTHYROXINE SODIUM [Concomitant]
  9. PANTOZOL [Concomitant]
  10. RAMIPRIL [Concomitant]
  11. SPIRIVA [Concomitant]
  12. HCT HEXAL (NGX) [Suspect]
     Indication: HYPERTENSION
     Dosage: 25 MG, QD
     Route: 048
     Dates: end: 20090721

REACTIONS (2)
  - BRADYCARDIA [None]
  - HYPERCALCAEMIA [None]
